FAERS Safety Report 23908197 (Version 1)
Quarter: 2024Q2

REPORT INFORMATION
  Report Type: Spontaneous
  Country: CA (occurrence: CA)
  Receive Date: 20240528
  Receipt Date: 20240528
  Transmission Date: 20240716
  Serious: Yes (Other)
  Sender: FDA-Public Use
  Company Number: CA-PFIZER INC-202400179173

PATIENT
  Age: 74 Year
  Sex: Female

DRUGS (1)
  1. RUXIENCE [Suspect]
     Active Substance: RITUXIMAB-PVVR
     Indication: Rheumatoid arthritis
     Dosage: 1000 MG EVERY 2 WEEKS 2 DOSES
     Route: 042
     Dates: start: 20230531, end: 20230615

REACTIONS (1)
  - Shoulder fracture [Recovered/Resolved]

NARRATIVE: CASE EVENT DATE: 20230101
